FAERS Safety Report 17355540 (Version 1)
Quarter: 2020Q1

REPORT INFORMATION
  Report Type: Spontaneous
  Country: CA (occurrence: CA)
  Receive Date: 20200131
  Receipt Date: 20200131
  Transmission Date: 20200409
  Serious: Yes (Hospitalization, Other)
  Sender: FDA-Public Use
  Company Number: CA-ALSI-202000044

PATIENT
  Age: 62 Year
  Sex: Female

DRUGS (11)
  1. BREO ELLIPTA [Suspect]
     Active Substance: FLUTICASONE FUROATE\VILANTEROL TRIFENATATE
  2. UMECLIDINIUM BROMIDE; VILANTEROL TRIFENATATE [Suspect]
     Active Substance: UMECLIDINIUM BROMIDE\VILANTEROL TRIFENATATE
  3. SEPTRA [Suspect]
     Active Substance: SULFAMETHOXAZOLE\TRIMETHOPRIM
  4. OMEPRAZOLE. [Suspect]
     Active Substance: OMEPRAZOLE
  5. PULMICORT TURBUHALER [Suspect]
     Active Substance: BUDESONIDE
  6. VITAMIN D NOS [Suspect]
     Active Substance: VITAMIN D NOS
  7. PREDNISONE. [Suspect]
     Active Substance: PREDNISONE
  8. RISEDRONATE SODIUM. [Suspect]
     Active Substance: RISEDRONATE SODIUM
  9. SALBUTAMOL SULFATE [Suspect]
     Active Substance: ALBUTEROL SULFATE
  10. CALCIUM [Suspect]
     Active Substance: CALCIUM
  11. OXYGEN. [Suspect]
     Active Substance: OXYGEN
     Indication: PRODUCT USED FOR UNKNOWN INDICATION
     Route: 065

REACTIONS (11)
  - Blood count abnormal [Unknown]
  - Dyspnoea [Unknown]
  - Wheezing [Unknown]
  - Chest discomfort [Unknown]
  - Chronic obstructive pulmonary disease [Unknown]
  - Drug dependence [Unknown]
  - Pneumothorax [Unknown]
  - Asthma [Unknown]
  - Exercise tolerance decreased [Unknown]
  - Lung adenocarcinoma stage IV [Unknown]
  - Therapeutic product effect incomplete [Unknown]
